FAERS Safety Report 9025362 (Version 1)
Quarter: 2012Q4

REPORT INFORMATION
  Report Type: 
  Country: AR (occurrence: AR)
  Receive Date: 20121211
  Receipt Date: 20121211
  Transmission Date: 20130627
  Serious: Yes (Other)
  Sender: FDA-Public Use
  Company Number: PHHY2012AR113409

PATIENT
  Sex: Female

DRUGS (1)
  1. VOLTAREN [Suspect]
     Indication: BONE PAIN
     Dosage: 1 DF/day
     Dates: start: 2007

REACTIONS (2)
  - Chronic obstructive pulmonary disease [Recovering/Resolving]
  - Amnesia [Recovering/Resolving]
